FAERS Safety Report 14870493 (Version 1)
Quarter: 2018Q2

REPORT INFORMATION
  Report Type: Spontaneous
  Country: FR (occurrence: FR)
  Receive Date: 20180509
  Receipt Date: 20180509
  Transmission Date: 20180711
  Serious: Yes (Hospitalization, Other)
  Sender: FDA-Public Use
  Company Number: FR-MERCK KGAA-2047481

PATIENT
  Age: 46 Year
  Sex: Female

DRUGS (1)
  1. NOVOTHYROX [Suspect]
     Active Substance: LEVOTHYROXINE SODIUM
     Indication: POST PROCEDURAL HYPOTHYROIDISM
     Dates: start: 201706

REACTIONS (37)
  - Anxiety [Recovering/Resolving]
  - Eye disorder [None]
  - Lymphocyte count increased [None]
  - Insomnia [Recovering/Resolving]
  - Dry eye [Recovering/Resolving]
  - Polyuria [None]
  - Depressed mood [None]
  - Alopecia [Recovering/Resolving]
  - Hyperhidrosis [None]
  - Tremor [None]
  - Impaired driving ability [None]
  - Depression [None]
  - Loss of personal independence in daily activities [None]
  - Fatigue [None]
  - Muscular weakness [None]
  - Myalgia [None]
  - Eye irritation [None]
  - Hypoglycaemia [None]
  - Dyspnoea [None]
  - Sleep disorder [None]
  - Nausea [None]
  - Thyroxine increased [Recovered/Resolved]
  - Panic attack [Recovering/Resolving]
  - Hunger [None]
  - Polydipsia [None]
  - Irritability [None]
  - Medullary thyroid cancer [None]
  - Vertigo [Recovering/Resolving]
  - Temperature intolerance [None]
  - Weight decreased [None]
  - Phaeochromocytoma [None]
  - Hyperthyroidism [Recovering/Resolving]
  - Impaired work ability [None]
  - Eye pruritus [None]
  - Nervousness [None]
  - White blood cell count decreased [None]
  - Palpitations [None]

NARRATIVE: CASE EVENT DATE: 201706
